FAERS Safety Report 16628293 (Version 2)
Quarter: 2019Q3

REPORT INFORMATION
  Report Type: Spontaneous
  Country: ES (occurrence: ES)
  Receive Date: 20190724
  Receipt Date: 20190816
  Transmission Date: 20191004
  Serious: Yes (Other)
  Sender: FDA-Public Use
  Company Number: PHHY2019ES065540

PATIENT
  Age: 3 Year
  Sex: Male

DRUGS (11)
  1. TOPOTECAN HYDROCHLORIDE. [Suspect]
     Active Substance: TOPOTECAN HYDROCHLORIDE
     Indication: NEUROBLASTOMA
     Dosage: 0.7 MG/M2, QD (SECOND THERAPEUTIC ADMINISTRATION, ON DAY 15)
     Route: 050
  2. IOBENGUANE (131 I) [Suspect]
     Active Substance: IOBENGUANE I-131
     Indication: NEUROBLASTOMA
     Dosage: 444 MBQ/KG (12 MCI/KG) MEASURED IN A DOSE CALIBRATOR WAS DILUTED WITH NORMAL SALINE TO 50 ML
     Route: 050
  3. NORMAL SALINE [Concomitant]
     Active Substance: SODIUM CHLORIDE
     Indication: DIURETIC THERAPY
     Dosage: 2.01 PER 1.73 M2/24 H FOR 4 H BEFORE TREATMENT
     Route: 050
  4. POTASSIUM IODIDE. [Concomitant]
     Active Substance: POTASSIUM IODIDE
     Indication: PROPHYLAXIS
     Dosage: UNK
     Route: 065
  5. TOPOTECAN HYDROCHLORIDE. [Suspect]
     Active Substance: TOPOTECAN HYDROCHLORIDE
     Dosage: 0.7 MG/M2, QD (INFUSED OVER 30 MIN BEFORE ADMINISTRATION OF 131I-MIBG)
     Route: 050
  6. IOBENGUANE (131 I) [Suspect]
     Active Substance: IOBENGUANE I-131
     Dosage: 5 GBQ, FIRST ADMINISTERED ACTIVITY
     Route: 050
  7. POTASSIUM IODIDE. [Concomitant]
     Active Substance: POTASSIUM IODIDE
     Indication: THYROID FUNCTION TEST NORMAL
  8. ONDANSETRON HYDROCHLORIDE. [Concomitant]
     Active Substance: ONDANSETRON HYDROCHLORIDE
     Indication: PREMEDICATION
     Dosage: 20 ?G/KG, BID
     Route: 065
  9. ONDANSETRON HYDROCHLORIDE. [Concomitant]
     Active Substance: ONDANSETRON HYDROCHLORIDE
     Indication: POLYURIA
  10. NORMAL SALINE [Concomitant]
     Active Substance: SODIUM CHLORIDE
     Indication: NEUROBLASTOMA
     Dosage: IOBENGUANE DILUTED WITH NORMAL SODIUM CHLORIDE TO 50ML AND THEN INFUSED AS SOON AS POSSIBLE OVER
     Route: 050
  11. IOBENGUANE (131 I) [Suspect]
     Active Substance: IOBENGUANE I-131
     Dosage: 5.6 GBQ, SECOND ADMINISTERED ACTIVITY
     Route: 050

REACTIONS (3)
  - Anaemia [Unknown]
  - Product use in unapproved indication [Unknown]
  - Thrombocytopenia [Unknown]
